FAERS Safety Report 7361172-2 (Version None)
Quarter: 2011Q1

REPORT INFORMATION
  Report Type: 
  Country: None (occurrence: None)
  Receive Date: 20110315
  Receipt Date: 20110315
  Transmission Date: 20110831
  Serious: Yes (Other)
  Sender: FDA-Public Use
  Company Number: None

PATIENT

DRUGS (1)
  1. SIMILASAN STYE EYE CARE SIMILASAN [Suspect]
     Indication: HORDEOLUM
     Dosage: 2 DROPS
     Dates: start: 20110225, end: 20110225

REACTIONS (2)
  - EYE IRRITATION [None]
  - BLINDNESS UNILATERAL [None]
